FAERS Safety Report 6714553-1 (Version None)
Quarter: 2010Q2

REPORT INFORMATION
  Report Type: 
  Country: None (occurrence: None)
  Receive Date: 20100506
  Receipt Date: 20100423
  Transmission Date: 20101027
  Serious: Yes (Hospitalization, Other)
  Sender: FDA-Public Use
  Company Number: DE-MYLANLABS-2009S1003445

PATIENT
  Age: 93 Year
  Sex: Female

DRUGS (9)
  1. DICLOFENAC [Suspect]
     Indication: BONE PAIN
     Route: 048
     Dates: start: 20080501, end: 20080911
  2. ISCOVER [Suspect]
     Indication: MYOCARDIAL INFARCTION
     Route: 048
     Dates: start: 20050901
  3. AMLODIPINE [Concomitant]
     Indication: HYPERTENSION
     Route: 048
     Dates: start: 20000101, end: 20080911
  4. LANTUS [Concomitant]
     Indication: DIABETES MELLITUS
     Route: 058
     Dates: start: 20000101, end: 20080911
  5. PANTOZOL [Concomitant]
     Indication: PROPHYLAXIS AGAINST GASTROINTESTINAL ULCER
     Route: 048
     Dates: start: 20040101
  6. ACETAMINOPHEN [Concomitant]
     Indication: BONE PAIN
     Route: 048
     Dates: start: 20080501
  7. SIMVASTATIN [Concomitant]
     Indication: HYPERLIPIDAEMIA
     Route: 048
     Dates: start: 20050101
  8. TILIDINE [Concomitant]
     Indication: BONE PAIN
     Route: 048
     Dates: start: 20080501
  9. ISCOVER [Concomitant]
     Indication: ISCHAEMIC HEART DISEASE PROPHYLAXIS
     Route: 048
     Dates: start: 20050901

REACTIONS (2)
  - DRUG INTERACTION [None]
  - GASTROINTESTINAL ULCER HAEMORRHAGE [None]
